FAERS Safety Report 10713448 (Version 1)
Quarter: 2015Q1

REPORT INFORMATION
  Report Type: Spontaneous
  Country: US (occurrence: None)
  Receive Date: 20150114
  Receipt Date: 20150114
  Transmission Date: 20150721
  Serious: Yes (Life-Threatening)
  Sender: FDA-Public Use
  Company Number: None

PATIENT
  Age: 58 Year
  Sex: Female
  Weight: 61.24 kg

DRUGS (4)
  1. MORPHINE [Concomitant]
     Active Substance: MORPHINE
  2. DIFLUCAN [Concomitant]
     Active Substance: FLUCONAZOLE
  3. BUPROPION [Concomitant]
     Active Substance: BUPROPION
  4. AVELOX [Suspect]
     Active Substance: MOXIFLOXACIN HYDROCHLORIDE
     Dosage: 1 TAB
     Route: 048
     Dates: start: 20150112, end: 20150112

REACTIONS (1)
  - Anaphylactic reaction [None]

NARRATIVE: CASE EVENT DATE: 20150112
